FAERS Safety Report 11059985 (Version 1)
Quarter: 2015Q2

REPORT INFORMATION
  Report Type: Spontaneous
  Country: US (occurrence: None)
  Receive Date: 20150422
  Receipt Date: 20150422
  Transmission Date: 20150821
  Serious: Yes (Other)
  Sender: FDA-Public Use
  Company Number: COL_19585_2015

PATIENT
  Age: 28 Year
  Sex: Female

DRUGS (1)
  1. COLGATE TOTAL CLEAN MINT ANTIGINGIVITIS [Suspect]
     Active Substance: SODIUM FLUORIDE\TRICLOSAN
     Indication: PRODUCT USED FOR UNKNOWN INDICATION
     Dosage: COVERED THE WHOLE HEAD OF THE TOOTHBRUSH
     Route: 048
     Dates: start: 20150409, end: 20150409

REACTIONS (5)
  - Stomatitis [None]
  - Oral disorder [None]
  - Application site reaction [None]
  - Feeding disorder [None]
  - Tongue disorder [None]

NARRATIVE: CASE EVENT DATE: 20150409
